FAERS Safety Report 6318755-8 (Version None)
Quarter: 2009Q3

REPORT INFORMATION
  Report Type: 
  Country: None (occurrence: None)
  Receive Date: 20090821
  Receipt Date: 20090813
  Transmission Date: 20100115
  Serious: Yes (Hospitalization)
  Sender: FDA-Public Use
  Company Number: FR-ABBOTT-09P-056-0503377-00

PATIENT
  Age: 31 Year
  Sex: Female

DRUGS (7)
  1. HUMIRA [Suspect]
     Indication: CROHN'S DISEASE
     Route: 058
     Dates: start: 20080601, end: 20090101
  2. HUMIRA [Suspect]
     Indication: ANKYLOSING SPONDYLITIS
     Dates: start: 20090215
  3. HUMIRA [Suspect]
     Indication: GASTROINTESTINAL INFLAMMATION
  4. PREDNISONE [Concomitant]
     Indication: CROHN'S DISEASE
     Route: 048
     Dates: start: 20050101, end: 20081001
  5. PREDNISONE [Concomitant]
     Indication: ANKYLOSING SPONDYLITIS
  6. AZATHIOPRINE [Concomitant]
     Indication: CROHN'S DISEASE
     Route: 048
     Dates: start: 20070101, end: 20081101
  7. AZATHIOPRINE [Concomitant]
     Indication: ANKYLOSING SPONDYLITIS

REACTIONS (5)
  - ASTHENIA [None]
  - HEADACHE [None]
  - MENINGEAL DISORDER [None]
  - OPTIC NEURITIS [None]
  - PYREXIA [None]
